FAERS Safety Report 16174887 (Version 3)
Quarter: 2019Q3

REPORT INFORMATION
  Report Type: Report from Study
  Country: GB (occurrence: GB)
  Receive Date: 20190409
  Receipt Date: 20190812
  Transmission Date: 20191004
  Serious: Yes (Hospitalization)
  Sender: FDA-Public Use
  Company Number: GB-PFIZER INC-2019143902

PATIENT
  Age: 70 Year
  Sex: Female
  Weight: 57.8 kg

DRUGS (17)
  1. BLINDED PF-06425090 [Suspect]
     Active Substance: INVESTIGATIONAL PRODUCT
     Dosage: SINGLE DOSE
     Route: 030
     Dates: start: 20180613, end: 20180613
  2. BLINDED PLACEBO [Suspect]
     Active Substance: INVESTIGATIONAL PRODUCT
     Dosage: SINGLE DOSE
     Route: 030
     Dates: start: 20180613, end: 20180613
  3. GRANISETRON [Concomitant]
     Active Substance: GRANISETRON
     Indication: NAUSEA
     Dosage: UNK
     Route: 048
     Dates: start: 20190206
  4. ATENOLOL. [Concomitant]
     Active Substance: ATENOLOL
     Indication: HYPERTENSION
     Dosage: UNK
     Route: 048
     Dates: start: 2002
  5. PARACETAMOL [Concomitant]
     Active Substance: ACETAMINOPHEN
     Indication: PAIN
     Dosage: UNK
     Dates: start: 20180808
  6. BLINDED PF-06425090 [Suspect]
     Active Substance: INVESTIGATIONAL PRODUCT
     Indication: CLOSTRIDIUM DIFFICILE IMMUNISATION
     Dosage: SINGLE DOSE
     Route: 030
     Dates: start: 20180711, end: 20180711
  7. EPIRUBICIN HCL [Suspect]
     Active Substance: EPIRUBICIN HYDROCHLORIDE
     Indication: CHEMOTHERAPY
     Dosage: UNK UNK, EVERY 3 WEEKS
     Dates: start: 20190205
  8. CYCLOPHOSPHAMIDE. [Suspect]
     Active Substance: CYCLOPHOSPHAMIDE
     Indication: CHEMOTHERAPY
     Dosage: UNK UNK, EVERY 3 WEEKS
     Dates: start: 20190205
  9. GABAPENTIN. [Concomitant]
     Active Substance: GABAPENTIN
     Indication: OSTEOARTHRITIS
     Dosage: UNK
     Route: 048
  10. METOCLOPRAMIDE. [Concomitant]
     Active Substance: METOCLOPRAMIDE
     Indication: NAUSEA
     Dosage: UNK
     Route: 048
     Dates: start: 20190206
  11. BLINDED PLACEBO [Suspect]
     Active Substance: INVESTIGATIONAL PRODUCT
     Indication: CLOSTRIDIUM DIFFICILE IMMUNISATION
     Dosage: SINGLE DOSE
     Route: 030
     Dates: start: 20180711, end: 20180711
  12. BLINDED PLACEBO [Suspect]
     Active Substance: INVESTIGATIONAL PRODUCT
     Dosage: SINGLE DOSE
     Route: 030
     Dates: start: 20180613, end: 20180613
  13. BLINDED PF-06425090 [Suspect]
     Active Substance: INVESTIGATIONAL PRODUCT
     Indication: CLOSTRIDIUM DIFFICILE IMMUNISATION
     Dosage: SINGLE DOSE
     Route: 030
     Dates: start: 20180711, end: 20180711
  14. BLINDED PLACEBO [Suspect]
     Active Substance: INVESTIGATIONAL PRODUCT
     Indication: CLOSTRIDIUM DIFFICILE IMMUNISATION
     Dosage: SINGLE DOSE
     Route: 030
     Dates: start: 20180711, end: 20180711
  15. BENDROFLUMETHIAZIDE [Concomitant]
     Active Substance: BENDROFLUMETHIAZIDE
     Indication: HYPERTENSION
     Dosage: UNK
     Route: 048
  16. BLINDED PF-06425090 [Suspect]
     Active Substance: INVESTIGATIONAL PRODUCT
     Dosage: SINGLE DOSE
     Route: 030
     Dates: start: 20180613, end: 20180613
  17. AMITRIPTYLINE [Concomitant]
     Active Substance: AMITRIPTYLINE
     Indication: MIGRAINE
     Dosage: UNK
     Dates: start: 201804

REACTIONS (1)
  - Pyelonephritis [Recovered/Resolved]

NARRATIVE: CASE EVENT DATE: 20190313
